FAERS Safety Report 7328935-0 (Version None)
Quarter: 2011Q1

REPORT INFORMATION
  Report Type: 
  Country: None (occurrence: None)
  Receive Date: 20110225
  Receipt Date: 20110225
  Transmission Date: 20110831
  Serious: Yes (Hospitalization)
  Sender: FDA-Public Use
  Company Number: None

PATIENT
  Age: 64 Year
  Sex: Female
  Weight: 61.6 kg

DRUGS (1)
  1. BEVACIZUMAB 25MG/ML [Suspect]
     Indication: RENAL CELL CARCINOMA
     Dosage: 635.5 MG EVERY OTHER WEEK IV BOLUS
     Route: 040
     Dates: start: 20100222, end: 20101005

REACTIONS (6)
  - LETHARGY [None]
  - CONFUSIONAL STATE [None]
  - NUCLEAR MAGNETIC RESONANCE IMAGING [None]
  - LACUNAR INFARCTION [None]
  - CEREBRAL INFARCTION [None]
  - ALTERED STATE OF CONSCIOUSNESS [None]
